FAERS Safety Report 8862372 (Version 3)
Quarter: 2013Q1

REPORT INFORMATION
  Report Type: Report from Study
  Country: JP (occurrence: JP)
  Receive Date: 20121026
  Receipt Date: 20130306
  Transmission Date: 20140127
  Serious: Yes (Death, Other)
  Sender: FDA-Public Use
  Company Number: PHHY2012JP095707

PATIENT
  Age: 80 Year
  Sex: 0
  Weight: 42 kg

DRUGS (12)
  1. EXELON [Suspect]
     Indication: DEMENTIA ALZHEIMER^S TYPE
     Dosage: 4.5 MG, DAILY
     Route: 062
     Dates: start: 20120730, end: 20120819
  2. EXELON [Suspect]
     Dosage: 9 MG, DAILY
     Route: 062
     Dates: start: 20120820, end: 20120902
  3. EXELON [Suspect]
     Dosage: 13.5MG, DAILY
     Route: 062
     Dates: start: 20120903, end: 20120930
  4. EXELON [Suspect]
     Dosage: 18 MG, DAILY
     Route: 062
     Dates: start: 20121001
  5. JANUVIA [Concomitant]
     Indication: TYPE 2 DIABETES MELLITUS
     Dosage: 50 MG, UNK
     Route: 048
  6. BLOPRESS [Concomitant]
     Indication: HYPERTENSION
     Dosage: 4 MG, UNK
     Route: 048
  7. BASEN [Concomitant]
     Indication: TYPE 2 DIABETES MELLITUS
     Dosage: 0.9 MG, UNK
     Route: 048
  8. GLYCORAN [Concomitant]
     Indication: TYPE 2 DIABETES MELLITUS
     Dosage: 500 MG, UNK
     Route: 048
  9. MEMARY [Concomitant]
     Dosage: 20 MG, UNK
     Route: 048
     Dates: start: 20120730
  10. DIART [Concomitant]
     Indication: CARDIAC FAILURE CONGESTIVE
     Dosage: 60 MG, UNK
     Dates: start: 20120910
  11. RISPERDAL [Concomitant]
     Indication: SCHIZOPHRENIA
     Dosage: 2 MG, UNK
     Route: 048
     Dates: start: 20120802
  12. RISPERDAL [Concomitant]
     Dosage: 2 MG, BID
     Route: 048
     Dates: start: 201208, end: 20121016

REACTIONS (9)
  - Cardio-respiratory arrest [Fatal]
  - Cardiac failure congestive [Fatal]
  - Blood pressure decreased [Fatal]
  - Depressed level of consciousness [Unknown]
  - Eating disorder [Unknown]
  - Unresponsive to stimuli [Unknown]
  - Gait disturbance [Unknown]
  - Somnolence [Unknown]
  - Restlessness [Unknown]
